FAERS Safety Report 4922404-0 (Version None)
Quarter: 2006Q1

REPORT INFORMATION
  Report Type: 
  Country: None (occurrence: None)
  Receive Date: 20060224
  Receipt Date: 20060117
  Transmission Date: 20060701
  Serious: Yes (Hospitalization)
  Sender: FDA-Public Use
  Company Number: US-MERCK-0601USA01924

PATIENT
  Age: 44 Year
  Sex: Male
  Weight: 86 kg

DRUGS (6)
  1. VIOXX [Suspect]
     Indication: BACK PAIN
     Route: 048
     Dates: start: 20010501, end: 20020131
  2. VIOXX [Suspect]
     Route: 048
     Dates: start: 20010501, end: 20020131
  3. VIOXX [Suspect]
     Route: 048
     Dates: start: 20020205
  4. CYCLOBENZAPRINE HYDROCHLORIDE [Concomitant]
     Route: 065
  5. ENALAPRIL MALEATE [Concomitant]
     Indication: HYPOTENSION
     Route: 065
  6. MOMENTUM (ACETAMINOPHEN) [Concomitant]
     Route: 065

REACTIONS (4)
  - ACUTE MYOCARDIAL INFARCTION [None]
  - ANXIETY DISORDER [None]
  - CORONARY ARTERY DISEASE [None]
  - MYOCARDIAL INFARCTION [None]
